FAERS Safety Report 19768394 (Version 1)
Quarter: 2021Q3

REPORT INFORMATION
  Report Type: Spontaneous
  Country: US (occurrence: US)
  Receive Date: 20210831
  Receipt Date: 20210831
  Transmission Date: 20211014
  Serious: No
  Sender: FDA-Public Use
  Company Number: None

PATIENT
  Age: 74 Year
  Sex: Male
  Weight: 106 kg

DRUGS (5)
  1. ROSUVASTATIN 20MG [Concomitant]
     Active Substance: ROSUVASTATIN
  2. DULOXETINE 60MG [Concomitant]
     Active Substance: DULOXETINE
  3. VITAMIN B COMPLEX [Concomitant]
     Active Substance: CYANOCOBALAMIN\DEXPANTHENOL\NIACINAMIDE\PYRIDOXINE HYDROCHLORIDE\RIBOFLAVIN 5^-PHOSPHATE SODIUM\THIAMINE HYDROCHLORIDE\VITAMIN B COMPLEX
  4. REMIFENTANIL HCL [Suspect]
     Active Substance: REMIFENTANIL HYDROCHLORIDE
     Indication: SEDATION
     Dosage: ?          OTHER FREQUENCY:MCG/KG/MIN ?DRIP;?
     Route: 041
  5. MAGNESIUM SUPPLEMENT [Concomitant]
     Active Substance: MAGNESIUM

REACTIONS (5)
  - Loss of consciousness [None]
  - Seizure like phenomena [None]
  - Adverse drug reaction [None]
  - Hypertension [None]
  - Procedure aborted [None]

NARRATIVE: CASE EVENT DATE: 20210816
